FAERS Safety Report 5875260-0 (Version None)
Quarter: 2008Q3

REPORT INFORMATION
  Report Type: 
  Country: None (occurrence: None)
  Receive Date: 20080909
  Receipt Date: 20080901
  Transmission Date: 20090109
  Serious: Yes (Life-Threatening)
  Sender: FDA-Public Use
  Company Number: FR-AVENTIS-200818246GDDC

PATIENT
  Age: 92 Year
  Sex: Female

DRUGS (8)
  1. MINIRIN [Suspect]
     Route: 045
     Dates: start: 20080516, end: 20080525
  2. NORSET [Suspect]
     Indication: DEPRESSION
     Dosage: DOSE: 1 TBL
     Route: 048
  3. NEXIUM [Suspect]
     Route: 048
  4. RIVOTRIL [Suspect]
     Indication: ANXIETY
     Route: 048
  5. RISPERDAL [Suspect]
     Indication: ANXIETY
     Route: 048
  6. TROSPIUM CHLORIDE [Concomitant]
     Route: 048
     Dates: start: 20080516
  7. ACETYLSALICYLATE LYSINE [Concomitant]
  8. MACROGOL [Concomitant]
     Route: 048

REACTIONS (3)
  - BALANCE DISORDER [None]
  - HYPONATRAEMIA [None]
  - OFF LABEL USE [None]
